FAERS Safety Report 4297974-9 (Version None)
Quarter: 2004Q1

REPORT INFORMATION
  Report Type: 
  Country: None (occurrence: None)
  Receive Date: 20040218
  Receipt Date: 20001222
  Transmission Date: 20041129
  Serious: Yes (Other)
  Sender: FDA-Public Use
  Company Number: US-BRISTOL-MYERS SQUIBB COMPANY-10660496

PATIENT
  Age: 36 Year
  Sex: Male
  Weight: 70 kg

DRUGS (14)
  1. STADOL [Suspect]
     Indication: MIGRAINE
     Route: 045
     Dates: start: 19920101, end: 19980101
  2. ELAVIL [Concomitant]
  3. PERCOCET [Concomitant]
  4. VALIUM [Concomitant]
  5. XANAX [Concomitant]
  6. PERCODAN [Concomitant]
  7. TRAZODONE HCL [Concomitant]
  8. ATIVAN [Concomitant]
  9. ACETAMINOPHEN [Concomitant]
  10. PHENYTOIN [Concomitant]
  11. LORCET-HD [Concomitant]
  12. VICODIN [Concomitant]
  13. HYDROCODONE [Concomitant]
  14. HALDOL [Concomitant]

REACTIONS (3)
  - DEPENDENCE [None]
  - DEPRESSION [None]
  - POLYSUBSTANCE ABUSE [None]
